FAERS Safety Report 6264938-5 (Version None)
Quarter: 2009Q3

REPORT INFORMATION
  Report Type: 
  Country: None (occurrence: None)
  Receive Date: 20090709
  Receipt Date: 20090709
  Transmission Date: 20100115
  Serious: No
  Sender: FDA-Public Use
  Company Number: None

PATIENT
  Sex: Female
  Weight: 67.1324 kg

DRUGS (1)
  1. ZYLET [Suspect]
     Indication: BLEPHARITIS
     Dosage: 2 DROPS EVERY 4 HRS
     Dates: start: 20090529, end: 20090602

REACTIONS (3)
  - DRUG HYPERSENSITIVITY [None]
  - ERYTHEMA OF EYELID [None]
  - EYELID OEDEMA [None]
